FAERS Safety Report 17370910 (Version 3)
Quarter: 2020Q1

REPORT INFORMATION
  Report Type: Spontaneous
  Country: US (occurrence: US)
  Receive Date: 20200205
  Receipt Date: 20200226
  Transmission Date: 20200409
  Serious: No
  Sender: FDA-Public Use
  Company Number: US-SA-2020SA027929

PATIENT
  Age: 53 Year
  Sex: Female

DRUGS (1)
  1. KEVZARA [Suspect]
     Active Substance: SARILUMAB
     Indication: RHEUMATOID ARTHRITIS
     Dosage: 200 MG, QOW
     Route: 058
     Dates: start: 20200110, end: 20200124

REACTIONS (5)
  - Injection site reaction [Unknown]
  - Cough [Unknown]
  - Injection site rash [Unknown]
  - Injection site erythema [Unknown]
  - Injection site vesicles [Unknown]

NARRATIVE: CASE EVENT DATE: 202001
